FAERS Safety Report 24267026 (Version 2)
Quarter: 2024Q3

REPORT INFORMATION
  Report Type: Spontaneous
  Country: GB (occurrence: GB)
  Receive Date: 20240830
  Receipt Date: 20240902
  Transmission Date: 20241017
  Serious: Yes (Hospitalization, Other)
  Sender: ABBVIE
  Company Number: None

PATIENT
  Age: 35 Year
  Sex: Male

DRUGS (1)
  1. ADALIMUMAB [Suspect]
     Active Substance: ADALIMUMAB
     Indication: Psoriatic arthropathy
     Route: 058
     Dates: start: 20220711, end: 20240814

REACTIONS (13)
  - Sarcoidosis [Recovering/Resolving]
  - Dyspnoea exertional [Unknown]
  - Pyrexia [Unknown]
  - Cough [Unknown]
  - Sputum discoloured [Unknown]
  - Pertussis [Unknown]
  - Disseminated tuberculosis [Unknown]
  - Lung disorder [Unknown]
  - Metastasis [Unknown]
  - Lymphangiosis carcinomatosa [Unknown]
  - Lymphadenopathy mediastinal [Unknown]
  - Granuloma [Unknown]
  - Hilar lymphadenopathy [Unknown]

NARRATIVE: CASE EVENT DATE: 20240501
